FAERS Safety Report 16119720 (Version 3)
Quarter: 2019Q2

REPORT INFORMATION
  Report Type: Report from Study
  Country: IT (occurrence: IT)
  Receive Date: 20190326
  Receipt Date: 20190506
  Transmission Date: 20190711
  Serious: Yes (Hospitalization)
  Sender: FDA-Public Use
  Company Number: PHHY2019IT066088

PATIENT
  Age: 61 Year
  Sex: Male
  Weight: 79 kg

DRUGS (2)
  1. TRAMETINIB [Suspect]
     Active Substance: TRAMETINIB
     Indication: METASTATIC MALIGNANT MELANOMA
     Dosage: 2 MG, UNK
     Route: 048
     Dates: start: 20181211
  2. TAFINLAR [Suspect]
     Active Substance: DABRAFENIB MESYLATE
     Indication: METASTATIC MALIGNANT MELANOMA
     Dosage: 300 MG, UNK
     Route: 048
     Dates: start: 20181211

REACTIONS (3)
  - Procalcitonin increased [Recovered/Resolved]
  - Encephalitis [Recovered/Resolved with Sequelae]
  - Pyrexia [Recovered/Resolved]

NARRATIVE: CASE EVENT DATE: 20190108
